FAERS Safety Report 9825224 (Version 1)
Quarter: 2014Q1

REPORT INFORMATION
  Report Type: Report from Study
  Country: CA (occurrence: CA)
  Receive Date: 20140117
  Receipt Date: 20140117
  Transmission Date: 20141002
  Serious: Yes (Hospitalization, Other)
  Sender: FDA-Public Use
  Company Number: CA-JNJFOC-20140106641

PATIENT
  Age: 34 Year
  Sex: Female
  Weight: 87 kg

DRUGS (11)
  1. REMICADE [Suspect]
     Indication: CROHN^S DISEASE
     Route: 042
     Dates: start: 20100615, end: 20140110
  2. CIPRALEX [Concomitant]
     Indication: ANTIDEPRESSANT THERAPY
     Route: 065
  3. RIVOTRIL [Concomitant]
     Route: 065
  4. ZOPICLONE [Concomitant]
     Indication: SLEEP DISORDER
     Route: 065
  5. TRAMACET [Concomitant]
     Indication: ANALGESIC THERAPY
     Route: 065
  6. METHOTREXATE [Concomitant]
     Route: 065
  7. DICYCLOMINE [Concomitant]
     Indication: PROPHYLAXIS
     Route: 065
  8. FOLIC ACID [Concomitant]
     Route: 065
  9. ZYTRAM [Concomitant]
     Indication: ANALGESIC THERAPY
     Route: 065
  10. LYRICA [Concomitant]
     Route: 065
  11. DILAUDID [Concomitant]
     Route: 065

REACTIONS (3)
  - Mucocutaneous candidiasis [Unknown]
  - Folliculitis [Unknown]
  - Skin disorder [Unknown]
